FAERS Safety Report 25988273 (Version 1)
Quarter: 2025Q4

REPORT INFORMATION
  Report Type: Spontaneous
  Country: CN (occurrence: CN)
  Receive Date: 20251103
  Receipt Date: 20251103
  Transmission Date: 20260118
  Serious: Yes (Other)
  Sender: ALEXION PHARMACEUTICALS
  Company Number: CN-ASTRAZENECA-202510CHN027007CN

PATIENT
  Age: 38 Year
  Sex: Male
  Weight: 80 kg

DRUGS (3)
  1. BUDESONIDE [Suspect]
     Active Substance: BUDESONIDE
     Indication: Bronchitis
     Dosage: 2.000000 MILLIGRAM,2 TIMES 1 DAY
     Dates: start: 20251026, end: 20251026
  2. IPRATROPIUM BROMIDE [Suspect]
     Active Substance: IPRATROPIUM BROMIDE
     Indication: Bronchitis
     Dosage: 0.500000 MILLIGRAM,2 TIMES 1 DAY
  3. BRICANYL [Suspect]
     Active Substance: TERBUTALINE SULFATE
     Indication: Bronchitis
     Dosage: 5.000000 MILLIGRAM,2 TIMES 1 DAY

REACTIONS (1)
  - Cardiac flutter [Recovering/Resolving]

NARRATIVE: CASE EVENT DATE: 20251026
